FAERS Safety Report 19276455 (Version 2)
Quarter: 2021Q2

REPORT INFORMATION
  Report Type: Spontaneous
  Country: FR (occurrence: FR)
  Receive Date: 20210520
  Receipt Date: 20210621
  Transmission Date: 20210717
  Serious: Yes (Hospitalization, Other)
  Sender: FDA-Public Use
  Company Number: FR-AUROBINDO-AUR-APL-2021-020265

PATIENT
  Age: 70 Year
  Sex: Male

DRUGS (6)
  1. CARTEOL (ATENOLOL) [Interacting]
     Active Substance: ATENOLOL
     Indication: HYPERTONIA
     Dosage: UNK
     Route: 065
  2. RAMIPRIL 5MG [Interacting]
     Active Substance: RAMIPRIL
     Indication: SINUS NODE DYSFUNCTION
     Dosage: 5 MILLIGRAM
     Route: 048
  3. HYPERIUM [Interacting]
     Active Substance: RILMENIDINE PHOSPHATE
     Indication: SINUS NODE DYSFUNCTION
     Dosage: UNK
     Route: 048
  4. FUROSEMIDE 40 MG [Suspect]
     Active Substance: FUROSEMIDE
     Indication: SINUS NODE DYSFUNCTION
     Dosage: 40 MILLIGRAM
     Route: 048
  5. FLECAINE LP [Interacting]
     Active Substance: FLECAINIDE
     Indication: SINUS NODE DYSFUNCTION
     Dosage: UNK
     Route: 048
  6. KARDEGIC [Interacting]
     Active Substance: ASPIRIN DL-LYSINE
     Indication: SINUS NODE DYSFUNCTION
     Dosage: 300 MILLIGRAM
     Route: 048

REACTIONS (2)
  - Drug interaction [Unknown]
  - Bradycardia [Unknown]

NARRATIVE: CASE EVENT DATE: 2008
